FAERS Safety Report 10867790 (Version 3)
Quarter: 2015Q1

REPORT INFORMATION
  Report Type: Spontaneous
  Country: US (occurrence: US)
  Receive Date: 20150225
  Receipt Date: 20150325
  Transmission Date: 20150721
  Serious: Yes (Other)
  Sender: FDA-Public Use
  Company Number: US-PFIZER INC-2015068836

PATIENT
  Age: 60 Year
  Sex: Female

DRUGS (1)
  1. CELEBREX [Suspect]
     Active Substance: CELECOXIB
     Indication: ARTHRALGIA
     Dosage: UNK (AS DIRECTED)
     Dates: start: 201102

REACTIONS (2)
  - Status asthmaticus [Unknown]
  - Respiratory arrest [Unknown]

NARRATIVE: CASE EVENT DATE: 2011
